FAERS Safety Report 25870942 (Version 1)
Quarter: 2025Q4

REPORT INFORMATION
  Report Type: Spontaneous
  Country: US (occurrence: None)
  Receive Date: 20251001
  Receipt Date: 20251001
  Transmission Date: 20260118
  Serious: Yes (Hospitalization)
  Sender: FDA-CTU
  Company Number: None

PATIENT
  Sex: Female

DRUGS (1)
  1. IBRANCE [Suspect]
     Active Substance: PALBOCICLIB
     Indication: Ovarian neoplasm
     Dosage: FREQUENCY : DAILY;?
     Route: 048
     Dates: start: 20250822

REACTIONS (2)
  - Dyspnoea [None]
  - Red blood cell count decreased [None]
